FAERS Safety Report 6990689-5 (Version None)
Quarter: 2010Q3

REPORT INFORMATION
  Report Type: 
  Country: None (occurrence: None)
  Receive Date: 20100916
  Receipt Date: 20100720
  Transmission Date: 20110219
  Serious: Yes (Death)
  Sender: FDA-Public Use
  Company Number: JP-PFIZER INC-2010086215

PATIENT
  Sex: Male

DRUGS (6)
  1. LYRICA [Suspect]
     Indication: POST HERPETIC NEURALGIA
     Dosage: UNK
     Route: 048
     Dates: start: 20100630, end: 20100702
  2. LASIX [Concomitant]
     Dosage: 40 MG, UNK
     Route: 048
  3. ARTIST [Concomitant]
     Dosage: 2.5 MG, UNK
     Route: 048
  4. ASPIRIN [Concomitant]
     Dosage: UNK
     Route: 048
  5. FAMOTIDINE [Concomitant]
     Dosage: 20 MG, UNK
     Route: 048
  6. ZYLORIC [Concomitant]
     Dosage: UNK

REACTIONS (3)
  - ANGINA PECTORIS [None]
  - CARDIAC FAILURE [None]
  - MYOCARDIAL INFARCTION [None]
